FAERS Safety Report 9844909 (Version 1)
Quarter: 2014Q1

REPORT INFORMATION
  Report Type: Spontaneous
  Country: SE (occurrence: None)
  Receive Date: 20140122
  Receipt Date: 20140122
  Transmission Date: 20141002
  Serious: No
  Sender: FDA-Public Use
  Company Number: 2014P1000181

PATIENT
  Age: 88 Year
  Sex: Female

DRUGS (1)
  1. ALENDRONATE [Suspect]

REACTIONS (3)
  - Ear disorder [None]
  - Osteonecrosis [None]
  - Ear infection [None]
